FAERS Safety Report 8739671 (Version 7)
Quarter: 2012Q4

REPORT INFORMATION
  Report Type: 
  Country: US (occurrence: US)
  Receive Date: 20120823
  Receipt Date: 20121003
  Transmission Date: 20130627
  Serious: Yes (Hospitalization, Other)
  Sender: FDA-Public Use
  Company Number: US-PFIZER INC-2012203552

PATIENT
  Age: 63 Year
  Sex: Male
  Weight: 74.83 kg

DRUGS (16)
  1. SUTENT [Suspect]
     Indication: METASTATIC RENAL CELL CARCINOMA
     Dosage: 50 mg, daily
     Dates: start: 20120803, end: 20120830
  2. SUTENT [Suspect]
     Dosage: 50 mg, Daily
     Dates: start: 20120914
  3. XANAX [Concomitant]
     Indication: CLAUSTROPHOBIA
     Dosage: 1 mg, 1x/day
     Dates: start: 20120808
  4. XANAX [Concomitant]
     Dosage: 1 mg, 1x/day
  5. AMLODIPINE BESILATE [Concomitant]
     Indication: BLOOD PRESSURE ABNORMAL
     Dosage: 5 mg, daily
     Dates: start: 201208
  6. AMLODIPINE BESILATE [Concomitant]
     Dosage: 10 mg, UNK
  7. ZOLOFT [Concomitant]
     Indication: OBSESSIVE-COMPULSIVE DISORDER
     Dosage: UNK
     Dates: start: 1998, end: 2003
  8. ZOLOFT [Concomitant]
     Indication: CLAUSTROPHOBIA
     Dosage: 100 mg, 1x/day
     Dates: start: 20120808
  9. ZOLOFT [Concomitant]
     Dosage: 100 mg, 1x/day
  10. TRAZODONE HYDROCHLORIDE [Concomitant]
     Indication: SLEEP DISORDER
     Dosage: 50 mg, 1x/day
  11. TYLENOL [Concomitant]
     Indication: PAIN
     Dosage: 1000 mg, as needed
  12. TYLENOL [Concomitant]
     Dosage: 500 mg, as needed
  13. RAPAFLO [Concomitant]
     Indication: PROSTATOMEGALY
     Dosage: 8 mg, 1x/day
  14. PROCHLORPERAZINE [Concomitant]
     Indication: NAUSEA
     Dosage: 10 mg, as needed
  15. TEMAZEPAM [Concomitant]
     Indication: INSOMNIA
     Dosage: UNK
  16. SERTRALINE HYDROCHLORIDE [Concomitant]
     Dosage: 50 mg, UNK

REACTIONS (20)
  - Vena cava thrombosis [Unknown]
  - Blood pressure increased [Unknown]
  - Blood pressure decreased [Unknown]
  - Dyspnoea [Not Recovered/Not Resolved]
  - Joint swelling [Not Recovered/Not Resolved]
  - Oedema peripheral [Unknown]
  - Eyelid oedema [Recovering/Resolving]
  - Fatigue [Not Recovered/Not Resolved]
  - Thirst [Not Recovered/Not Resolved]
  - Headache [Unknown]
  - Anxiety [Unknown]
  - Blister [Recovered/Resolved]
  - Blister [Not Recovered/Not Resolved]
  - Fatigue [Unknown]
  - Thirst [Unknown]
  - Nausea [Unknown]
  - Blood creatinine decreased [Unknown]
  - Blister [Not Recovered/Not Resolved]
  - Blister [Not Recovered/Not Resolved]
  - Dry skin [Not Recovered/Not Resolved]
